FAERS Safety Report 10189722 (Version 1)
Quarter: 2014Q2

REPORT INFORMATION
  Report Type: Spontaneous
  Country: US (occurrence: US)
  Receive Date: 20140522
  Receipt Date: 20140522
  Transmission Date: 20141212
  Serious: Yes (Other)
  Sender: FDA-Public Use
  Company Number: US-SA-2013SA101118

PATIENT
  Age: 59 Year
  Sex: Male
  Weight: 80 kg

DRUGS (13)
  1. LANTUS [Suspect]
     Indication: PRODUCT USED FOR UNKNOWN INDICATION
     Dosage: DOSE:30 UNIT(S)
     Route: 058
  2. NOVOLOG [Suspect]
     Indication: PRODUCT USED FOR UNKNOWN INDICATION
     Route: 065
  3. DRUG USED IN DIABETES [Suspect]
     Indication: DIABETES MELLITUS
     Route: 048
     Dates: start: 20130620, end: 20130624
  4. AMLODIPINE [Concomitant]
  5. TRAZODONE [Concomitant]
  6. METOPROLOL [Concomitant]
  7. ABILIFY [Concomitant]
  8. OMEPRAZOLE [Concomitant]
  9. BUPROPION [Concomitant]
  10. ALLOPURINOL [Concomitant]
  11. CYMBALTA [Concomitant]
  12. PLAVIX [Concomitant]
  13. LIPITOR [Concomitant]

REACTIONS (3)
  - Hypoglycaemia [Recovered/Resolved]
  - Mental status changes [Recovered/Resolved]
  - Hyperhidrosis [Recovered/Resolved]
